FAERS Safety Report 21847518 (Version 1)
Quarter: 2023Q1

REPORT INFORMATION
  Report Type: Spontaneous
  Country: US (occurrence: US)
  Receive Date: 20230111
  Receipt Date: 20230111
  Transmission Date: 20230418
  Serious: Yes (Other)
  Sender: FDA-Public Use
  Company Number: US-SA-SAC20230110000253

PATIENT
  Age: 56 Year
  Sex: Female
  Weight: 106 kg

DRUGS (1)
  1. DUPIXENT [Suspect]
     Active Substance: DUPILUMAB
     Indication: Dermatitis atopic
     Dosage: 300 MG, QOW
     Route: 058
     Dates: start: 20221117

REACTIONS (3)
  - Pneumonia [Recovering/Resolving]
  - Injection site bruising [Recovering/Resolving]
  - Wrong technique in product usage process [Unknown]
